FAERS Safety Report 25551615 (Version 2)
Quarter: 2025Q3

REPORT INFORMATION
  Report Type: Spontaneous
  Country: EU (occurrence: EU)
  Receive Date: 20250714
  Receipt Date: 20250804
  Transmission Date: 20251021
  Serious: Yes (Hospitalization, Other)
  Sender: REGENERON
  Company Number: EU-SANOFI-02580920

PATIENT
  Age: 47 Year
  Sex: Male

DRUGS (7)
  1. PRALUENT [Suspect]
     Active Substance: ALIROCUMAB
     Indication: Product used for unknown indication
     Dosage: 1 DF, QOW, SOLUTION FOR INJECTION
  2. PRALUENT [Suspect]
     Active Substance: ALIROCUMAB
     Dates: start: 2025
  3. REPATHA [Suspect]
     Active Substance: EVOLOCUMAB
     Indication: Product used for unknown indication
  4. RAMIPRIL [Concomitant]
     Active Substance: RAMIPRIL
     Indication: Product used for unknown indication
  5. CRESTOR [Concomitant]
     Active Substance: ROSUVASTATIN CALCIUM
     Indication: Product used for unknown indication
  6. ASPIRIN [Concomitant]
     Active Substance: ASPIRIN
     Indication: Product used for unknown indication
  7. VERAPAMIL [Concomitant]
     Active Substance: VERAPAMIL HYDROCHLORIDE
     Indication: Product used for unknown indication

REACTIONS (2)
  - Myocardial infarction [Recovered/Resolved]
  - Drug intolerance [Unknown]

NARRATIVE: CASE EVENT DATE: 20250301
